FAERS Safety Report 6416953-6 (Version None)
Quarter: 2009Q4

REPORT INFORMATION
  Report Type: 
  Country: None (occurrence: None)
  Receive Date: 20091027
  Receipt Date: 20090331
  Transmission Date: 20100525
  Serious: No
  Sender: FDA-Public Use
  Company Number: US-ALLERGAN-0904417US

PATIENT
  Sex: Male

DRUGS (1)
  1. ALPHAGAN P [Suspect]
     Indication: DRUG USE FOR UNKNOWN INDICATION
     Route: 047
     Dates: start: 20090101

REACTIONS (2)
  - FATIGUE [None]
  - HEADACHE [None]
